FAERS Safety Report 6070758-7 (Version None)
Quarter: 2009Q1

REPORT INFORMATION
  Report Type: 
  Country: None (occurrence: None)
  Receive Date: 20090209
  Receipt Date: 20090128
  Transmission Date: 20090719
  Serious: Yes (Other)
  Sender: FDA-Public Use
  Company Number: CA-PFIZER INC-2009163062

PATIENT

DRUGS (2)
  1. SOLU-MEDROL [Suspect]
  2. RITUXAN [Concomitant]
     Route: 042

REACTIONS (3)
  - HYPERTENSION [None]
  - NAUSEA [None]
  - PALPITATIONS [None]
